FAERS Safety Report 14402992 (Version 1)
Quarter: 2018Q1

REPORT INFORMATION
  Report Type: Spontaneous
  Country: ES (occurrence: ES)
  Receive Date: 20180117
  Receipt Date: 20180117
  Transmission Date: 20180509
  Serious: Yes (Hospitalization, Other)
  Sender: FDA-Public Use
  Company Number: ES-PFIZER INC-2018019561

PATIENT
  Age: 61 Year
  Sex: Female

DRUGS (4)
  1. GEMFIBROZIL. [Suspect]
     Active Substance: GEMFIBROZIL
     Indication: DYSLIPIDAEMIA
     Dosage: 900 MG, UNK
     Route: 048
     Dates: start: 20171027, end: 20171111
  2. CARVEDILOL. [Concomitant]
     Active Substance: CARVEDILOL
     Indication: HYPERTENSION
     Dosage: 18 MG, ONCE DAILY
     Route: 048
  3. DIGOXINA [Concomitant]
     Active Substance: DIGOXIN
     Indication: MYOCARDIAL ISCHAEMIA
     Dosage: 0.25 MG, ONCE DAILY
     Route: 048
     Dates: start: 201604
  4. LEVOTHYROXINE SODIUM. [Concomitant]
     Active Substance: LEVOTHYROXINE SODIUM
     Indication: HYPOTHYROIDISM
     Dosage: 112 UG, ONCE DAILY
     Route: 048
     Dates: start: 201007

REACTIONS (2)
  - Diarrhoea [Recovered/Resolved]
  - Acid base balance abnormal [Unknown]

NARRATIVE: CASE EVENT DATE: 20171031
